FAERS Safety Report 26131623 (Version 3)
Quarter: 2025Q4

REPORT INFORMATION
  Report Type: Spontaneous
  Country: JP (occurrence: JP)
  Receive Date: 20251208
  Receipt Date: 20251212
  Transmission Date: 20260118
  Serious: Yes (Other)
  Sender: PFIZER
  Company Number: JP-MLMSERVICE-20251121-PI723299-00249-1

PATIENT
  Age: 8 Decade
  Sex: Male
  Weight: 64 kg

DRUGS (6)
  1. OXALIPLATIN [Suspect]
     Active Substance: OXALIPLATIN
     Indication: Colon cancer
     Dosage: 230 MG
  2. CAPECITABINE [Concomitant]
     Active Substance: CAPECITABINE
     Indication: Colon cancer
     Dosage: 3000 MG, DAILY, DAY 1-14; 1 COURSE FOR 21 DAYS
  3. BEVACIZUMAB [Concomitant]
     Active Substance: BEVACIZUMAB
     Indication: Colon cancer
     Dosage: 320 MG, DAY 1; 1 COURSE FOR 21 DAYS
  4. GRANISETRON [Concomitant]
     Active Substance: GRANISETRON
     Indication: Colon cancer
     Dosage: 3 MG, DAY 1
  5. DEXAMETHASONE [Concomitant]
     Active Substance: DEXAMETHASONE
     Indication: Colon cancer
     Dosage: 6.6 MG, DAY 1
  6. SILODOSIN [Concomitant]
     Active Substance: SILODOSIN
     Dosage: 8 MG, DAILY

REACTIONS (2)
  - Urinary retention [Recovered/Resolved]
  - Neuropathy peripheral [Recovered/Resolved]
